FAERS Safety Report 6356612-1 (Version None)
Quarter: 2009Q3

REPORT INFORMATION
  Report Type: 
  Country: None (occurrence: None)
  Receive Date: 20090914
  Receipt Date: 20090914
  Transmission Date: 20100115
  Serious: Yes (Hospitalization)
  Sender: FDA-Public Use
  Company Number: None

PATIENT
  Sex: Male
  Weight: 46.4 kg

DRUGS (6)
  1. DOXORUBICIN HCL [Suspect]
     Dosage: 102 MG
  2. METHOTREXATE [Suspect]
     Dosage: 17 G
  3. DESFLURANE [Concomitant]
  4. LIDOCAINE [Concomitant]
  5. PROPOFOL [Concomitant]
  6. ROCURONIUM BROMIDE [Concomitant]

REACTIONS (11)
  - ATELECTASIS [None]
  - BLOOD PRESSURE DECREASED [None]
  - CHEST PAIN [None]
  - COUGH [None]
  - DYSPNOEA [None]
  - EJECTION FRACTION DECREASED [None]
  - INTRACARDIAC THROMBUS [None]
  - PERIPHERAL COLDNESS [None]
  - PLEURAL EFFUSION [None]
  - POST PROCEDURAL COMPLICATION [None]
  - PULSE ABNORMAL [None]
